FAERS Safety Report 4936668-0 (Version None)
Quarter: 2006Q1

REPORT INFORMATION
  Report Type: 
  Country: None (occurrence: None)
  Receive Date: 20060302
  Receipt Date: 20060216
  Transmission Date: 20060701
  Serious: Yes (Death, Hospitalization)
  Sender: FDA-Public Use
  Company Number: 2006SP000823

PATIENT
  Age: 79 Year
  Sex: Male

DRUGS (1)
  1. ZOPENEX (LEVALBUTEROL HCL) INHALATION SOLUTION [Suspect]
     Dosage: TID; INHALATION
     Route: 055

REACTIONS (1)
  - LUNG NEOPLASM MALIGNANT [None]
